FAERS Safety Report 23941778 (Version 1)
Quarter: 2024Q2

REPORT INFORMATION
  Report Type: Spontaneous
  Country: CA (occurrence: CA)
  Receive Date: 20240605
  Receipt Date: 20240605
  Transmission Date: 20240715
  Serious: Yes (Other)
  Sender: FDA-Public Use
  Company Number: CA-PFIZER INC-PV202300182490

PATIENT
  Age: 63 Year
  Sex: Female
  Weight: 82.7 kg

DRUGS (3)
  1. LORBRENA [Suspect]
     Active Substance: LORLATINIB
     Indication: Non-small cell lung cancer
     Dosage: 100 MG, DAILY
     Route: 048
     Dates: start: 20231117
  2. LORBRENA [Suspect]
     Active Substance: LORLATINIB
     Dosage: 75 MG (3 TABLETS OF 25 MG), DAILY
     Route: 048
  3. LORBRENA [Suspect]
     Active Substance: LORLATINIB
     Dosage: 2 DF, DAILY (2 TABLETS 50 MG TOTAL BY MOUTH DAILY)
     Route: 048

REACTIONS (2)
  - Weight decreased [Not Recovered/Not Resolved]
  - Neoplasm progression [Unknown]
